FAERS Safety Report 11391113 (Version 1)
Quarter: 2015Q3

REPORT INFORMATION
  Report Type: Spontaneous
  Country: US (occurrence: None)
  Receive Date: 20150814
  Receipt Date: 20150814
  Transmission Date: 20151125
  Serious: Yes (Hospitalization)
  Sender: FDA-Public Use
  Company Number: None

PATIENT
  Age: 76 Year
  Sex: Female
  Weight: 64.5 kg

DRUGS (2)
  1. CARBOPLATIN. [Suspect]
     Active Substance: CARBOPLATIN
     Dates: end: 20150505
  2. TAXOL [Suspect]
     Active Substance: PACLITAXEL
     Dates: end: 20150505

REACTIONS (15)
  - Palpitations [None]
  - Tricuspid valve incompetence [None]
  - Pulmonary hypertension [None]
  - Urinary tract infection [None]
  - Cough [None]
  - Klebsiella test positive [None]
  - Lung infiltration [None]
  - Atelectasis [None]
  - Diarrhoea [None]
  - Wheezing [None]
  - Mitral valve incompetence [None]
  - Cardiac failure congestive [None]
  - Pneumonia [None]
  - Aspiration [None]
  - Ejection fraction decreased [None]

NARRATIVE: CASE EVENT DATE: 20150508
